FAERS Safety Report 23553593 (Version 2)
Quarter: 2024Q1

REPORT INFORMATION
  Report Type: Spontaneous
  Country: US (occurrence: US)
  Receive Date: 20240222
  Receipt Date: 20240223
  Transmission Date: 20240409
  Serious: No
  Sender: FDA-Public Use
  Company Number: US-PFIZER INC-202400043958

PATIENT
  Sex: Female

DRUGS (2)
  1. LIDOCAINE HYDROCHLORIDE [Suspect]
     Active Substance: LIDOCAINE HYDROCHLORIDE
     Dosage: 8 SHOTS IN HER BACK
     Dates: start: 202306
  2. LIDOCAINE HYDROCHLORIDE [Suspect]
     Active Substance: LIDOCAINE HYDROCHLORIDE
     Dosage: ALSO REPORTED ^LIDOCAINE INJECTION BACK IN JUL(2023)^
     Dates: start: 202307

REACTIONS (7)
  - Recalled product administered [Unknown]
  - Bronchitis [Unknown]
  - Herpes zoster [Unknown]
  - Arthralgia [Not Recovered/Not Resolved]
  - Back disorder [Unknown]
  - Gastritis [Unknown]
  - Pain [Unknown]

NARRATIVE: CASE EVENT DATE: 20230101
